FAERS Safety Report 11889065 (Version 1)
Quarter: 2016Q1

REPORT INFORMATION
  Report Type: Spontaneous
  Country: US (occurrence: None)
  Receive Date: 20160104
  Receipt Date: 20160104
  Transmission Date: 20160526
  Serious: Yes (Disabling, Other)
  Sender: FDA-Public Use
  Company Number: None

PATIENT
  Age: 45 Year
  Sex: Female
  Weight: 83.92 kg

DRUGS (8)
  1. B VITAMINS [Concomitant]
     Active Substance: CYANOCOBALAMIN\DEXPANTHENOL\NIACINAMIDE\PYRIDOXINE HYDROCHLORIDE\RIBOFLAVIN 5^-PHOSPHATE SODIUM\THIAMINE HYDROCHLORIDE\VITAMIN B COMPLEX
  2. WRIST SPLINTS [Concomitant]
  3. LEG BRACES [Concomitant]
  4. EPSOM SALT BATHS [Concomitant]
  5. LEVAQUIN [Suspect]
     Active Substance: LEVOFLOXACIN
     Indication: SINUSITIS
     Dosage: 10 PILLS
     Route: 048
     Dates: start: 20070319, end: 20090211
  6. LEVAQUIN [Suspect]
     Active Substance: LEVOFLOXACIN
     Indication: UPPER RESPIRATORY TRACT INFECTION
     Dosage: 10 PILLS
     Route: 048
     Dates: start: 20070319, end: 20090211
  7. KNEE BRACE [Concomitant]
  8. CANE [Concomitant]

REACTIONS (10)
  - Pain [None]
  - Back injury [None]
  - Neck injury [None]
  - Tricuspid valve disease [None]
  - Toxicity to various agents [None]
  - Peripheral sensory neuropathy [None]
  - Mitral valve disease [None]
  - Gastrointestinal disorder [None]
  - Tendon rupture [None]
  - Vision blurred [None]

NARRATIVE: CASE EVENT DATE: 20070319
